FAERS Safety Report 9771912 (Version 1)
Quarter: 2013Q4

REPORT INFORMATION
  Report Type: Spontaneous
  Country: GB (occurrence: GB)
  Receive Date: 20131219
  Receipt Date: 20131219
  Transmission Date: 20140711
  Serious: Yes (Other)
  Sender: FDA-Public Use
  Company Number: GB-ASTRAZENECA-2013SE90565

PATIENT
  Age: 57 Year
  Sex: Female
  Weight: 54 kg

DRUGS (2)
  1. OMEPRAZOLE [Suspect]
     Indication: HYPERCHLORHYDRIA
     Route: 048
     Dates: start: 20131112, end: 20131112
  2. RENNIE [Concomitant]
     Route: 048
     Dates: start: 20131106, end: 20131110

REACTIONS (6)
  - Disturbance in attention [Not Recovered/Not Resolved]
  - Fatigue [Not Recovered/Not Resolved]
  - Tremor [Not Recovered/Not Resolved]
  - Dry mouth [Not Recovered/Not Resolved]
  - Nausea [Not Recovered/Not Resolved]
  - Abdominal discomfort [Not Recovered/Not Resolved]
